FAERS Safety Report 13982960 (Version 1)
Quarter: 2017Q3

REPORT INFORMATION
  Report Type: Report from Study
  Country: US (occurrence: US)
  Receive Date: 20170918
  Receipt Date: 20170918
  Transmission Date: 20171128
  Serious: Yes (Hospitalization)
  Sender: FDA-Public Use
  Company Number: US-JNJFOC-20170913294

PATIENT
  Age: 19 Year
  Sex: Male
  Weight: 86.4 kg

DRUGS (47)
  1. REMICADE [Suspect]
     Active Substance: INFLIXIMAB
     Indication: INFLAMMATORY BOWEL DISEASE
     Route: 042
     Dates: start: 20050407, end: 20100507
  2. REMICADE [Suspect]
     Active Substance: INFLIXIMAB
     Indication: INFLAMMATORY BOWEL DISEASE
     Route: 042
     Dates: start: 20130731, end: 20140424
  3. BENADRYL [Concomitant]
     Active Substance: DIPHENHYDRAMINE HYDROCHLORIDE
     Route: 065
  4. LINZESS [Concomitant]
     Active Substance: LINACLOTIDE
     Route: 065
  5. 5-ASA [Concomitant]
     Active Substance: MESALAMINE
     Route: 048
  6. PROVIGIL [Concomitant]
     Active Substance: MODAFINIL
     Route: 065
  7. PULMICORT TURBUHALER [Concomitant]
     Active Substance: BUDESONIDE
     Route: 065
  8. RIBOFLAVIN [Concomitant]
     Active Substance: RIBOFLAVIN
     Route: 065
  9. VITAMIN E [Concomitant]
     Active Substance: .ALPHA.-TOCOPHEROL
     Route: 065
  10. LACTOBACILLUS RHAMNOSUS [Concomitant]
     Active Substance: LACTOBACILLUS RHAMNOSUS
     Route: 065
  11. XOPENEX [Concomitant]
     Active Substance: LEVALBUTEROL HYDROCHLORIDE
     Route: 065
  12. ATENOLOL. [Concomitant]
     Active Substance: ATENOLOL
     Route: 065
  13. ATARAX [Concomitant]
     Active Substance: HYDROXYZINE HYDROCHLORIDE
     Route: 065
  14. HEPARIN [Concomitant]
     Active Substance: HEPARIN SODIUM
     Route: 065
  15. EPIPEN [Concomitant]
     Active Substance: EPINEPHRINE
     Route: 065
  16. MIDODRINE [Concomitant]
     Active Substance: MIDODRINE
     Route: 065
  17. MELATONIN [Concomitant]
     Active Substance: MELATONIN
     Route: 065
  18. LABETALOL [Concomitant]
     Active Substance: LABETALOL\LABETALOL HYDROCHLORIDE
     Route: 065
  19. PROTONIX [Concomitant]
     Active Substance: PANTOPRAZOLE SODIUM
     Route: 065
  20. COENZYME Q10 [Concomitant]
     Active Substance: UBIDECARENONE
     Route: 065
  21. KAPVAY [Concomitant]
     Active Substance: CLONIDINE HYDROCHLORIDE
     Route: 065
  22. KLONOPIN [Concomitant]
     Active Substance: CLONAZEPAM
     Route: 065
  23. HIZENTRA [Concomitant]
     Active Substance: HUMAN IMMUNOGLOBULIN G
     Route: 065
  24. ZOFRAN [Concomitant]
     Active Substance: ONDANSETRON HYDROCHLORIDE
     Route: 065
  25. SODIUM CHLORIDE. [Concomitant]
     Active Substance: SODIUM CHLORIDE
     Route: 065
  26. SODIUM BICARBONATE. [Concomitant]
     Active Substance: SODIUM BICARBONATE
     Route: 065
  27. SELENIUM [Concomitant]
     Active Substance: SELENIUM
     Route: 065
  28. ALPHA LIPOIC ACID [Concomitant]
     Active Substance: .ALPHA.-LIPOIC ACID
     Route: 065
  29. DEXTROSE. [Concomitant]
     Active Substance: DEXTROSE
     Route: 065
  30. CARBOXYMETHYLCELLULOSE [Concomitant]
     Active Substance: CARBOXYMETHYLCELLULOSE
     Route: 065
  31. VITAMIN D [Concomitant]
     Active Substance: CHOLECALCIFEROL
     Route: 065
  32. GAVILYTE G [Concomitant]
     Active Substance: POLYETHYLENE GLYCOL 3350\POTASSIUM CHLORIDE\SODIUM BICARBONATE\SODIUM CHLORIDE\SODIUM SULFATE ANHYDROUS
     Route: 065
  33. ORALONE [Concomitant]
     Active Substance: TRIAMCINOLONE ACETONIDE
     Route: 065
  34. BUDESONIDE. [Concomitant]
     Active Substance: BUDESONIDE
     Route: 065
  35. CITROMA [Concomitant]
     Active Substance: MAGNESIUM CITRATE
     Route: 065
  36. POTASSIUM CHLORIDE. [Concomitant]
     Active Substance: POTASSIUM CHLORIDE
     Route: 065
  37. TYLENOL [Concomitant]
     Active Substance: ACETAMINOPHEN
     Route: 065
  38. NALTREXONE [Concomitant]
     Active Substance: NALTREXONE
     Route: 065
  39. ATROVENT [Concomitant]
     Active Substance: IPRATROPIUM BROMIDE
     Route: 065
  40. TUMS [Concomitant]
     Active Substance: CALCIUM CARBONATE
     Route: 065
  41. VITAMIN C [Concomitant]
     Active Substance: ASCORBIC ACID
     Route: 065
  42. FLUTICASONE. [Concomitant]
     Active Substance: FLUTICASONE
     Route: 065
  43. FIORICET [Concomitant]
     Active Substance: ACETAMINOPHEN\BUTALBITAL\CAFFEINE
     Route: 065
  44. GOLYTELY [Concomitant]
     Active Substance: POLYETHYLENE GLYCOL 3350\POTASSIUM CHLORIDE\SODIUM BICARBONATE\SODIUM CHLORIDE\SODIUM SULFATE ANHYDROUS
     Route: 065
  45. SODIUM SULFATE [Concomitant]
     Active Substance: SODIUM SULFATE
     Route: 065
  46. NEURONTIN [Concomitant]
     Active Substance: GABAPENTIN
     Route: 065
  47. LEVALBUTEROL. [Concomitant]
     Active Substance: LEVALBUTEROL
     Route: 065

REACTIONS (1)
  - Bacterial infection [Recovered/Resolved]

NARRATIVE: CASE EVENT DATE: 20170906
